FAERS Safety Report 6399230-1 (Version None)
Quarter: 2009Q4

REPORT INFORMATION
  Report Type: 
  Country: None (occurrence: None)
  Receive Date: 20091014
  Receipt Date: 20080218
  Transmission Date: 20100525
  Serious: Yes (Hospitalization, Other)
  Sender: FDA-Public Use
  Company Number: US-ASTRAZENECA-2007UW27337

PATIENT
  Age: 37 Year
  Sex: Female
  Weight: 134.8 kg

DRUGS (14)
  1. SEROQUEL [Suspect]
     Indication: BIPOLAR DISORDER
     Dosage: VARIOUS DOSES INCLUDING BUT NOT LIMITED TO 200 MG, 300 MG, 600 MG, AND 900 MG
     Route: 048
     Dates: start: 19980101, end: 20070301
  2. SEROQUEL [Suspect]
     Dosage: 300-900 MG
     Route: 048
     Dates: start: 19990101
  3. ABILIFY [Concomitant]
     Dates: start: 20071107
  4. ABILIFY [Concomitant]
     Route: 048
     Dates: start: 20031001
  5. HALDOL [Concomitant]
     Dates: start: 19900101
  6. TRILEPTAL [Concomitant]
     Indication: BIPOLAR DISORDER
     Dosage: 150-450 MG
     Route: 048
     Dates: start: 20031201
  7. TRILEPTAL [Concomitant]
     Dates: start: 20050101
  8. TOPROL-XL [Concomitant]
     Dates: start: 20050101
  9. LORAZEPAM [Concomitant]
     Indication: INSOMNIA
     Dosage: 1.5-3 MG
     Route: 048
     Dates: start: 19990501
  10. LITHIUM CARBONATE [Concomitant]
     Route: 048
     Dates: start: 19990601
  11. CORDARONE [Concomitant]
     Dosage: 200-800 MG
     Dates: start: 20040501
  12. LASIX [Concomitant]
     Dates: start: 20040501
  13. ALDACTONE [Concomitant]
     Dates: start: 20040501
  14. DIOVAN 80 [Concomitant]
     Dates: start: 20040501

REACTIONS (13)
  - BLOOD CHOLESTEROL INCREASED [None]
  - CARDIAC FAILURE CONGESTIVE [None]
  - CARDIOMEGALY [None]
  - CHEST PAIN [None]
  - CONGESTIVE CARDIOMYOPATHY [None]
  - DIABETES MELLITUS [None]
  - HYPERLIPIDAEMIA [None]
  - INJURY [None]
  - INSOMNIA [None]
  - ISCHAEMIC CARDIOMYOPATHY [None]
  - OSTEOARTHRITIS [None]
  - SLEEP APNOEA SYNDROME [None]
  - TYPE 2 DIABETES MELLITUS [None]
